FAERS Safety Report 25139540 (Version 1)
Quarter: 2025Q1

REPORT INFORMATION
  Report Type: Spontaneous
  Country: US (occurrence: US)
  Receive Date: 20250331
  Receipt Date: 20250331
  Transmission Date: 20250408
  Serious: Yes (Hospitalization)
  Sender: DR REDDYS
  Company Number: None

PATIENT
  Sex: Female

DRUGS (1)
  1. ETHINYL ESTRADIOL\NORETHINDRONE [Suspect]
     Active Substance: ETHINYL ESTRADIOL\NORETHINDRONE
     Indication: Oral contraception
     Route: 048

REACTIONS (2)
  - Cerebral venous thrombosis [Unknown]
  - Hyperhomocysteinaemia [Unknown]
